FAERS Safety Report 14995021 (Version 1)
Quarter: 2018Q2

REPORT INFORMATION
  Report Type: Spontaneous
  Country: US (occurrence: US)
  Receive Date: 20180521
  Receipt Date: 20180521
  Transmission Date: 20180711
  Serious: Yes (Other)
  Sender: FDA-Public Use
  Company Number: None

PATIENT
  Age: 65 Year
  Sex: Male
  Weight: 74.25 kg

DRUGS (5)
  1. ASPIRIN. [Concomitant]
     Active Substance: ASPIRIN
  2. LEVOTHYROXINE. [Concomitant]
     Active Substance: LEVOTHYROXINE
  3. SILDENAFIL TEVA 100 MG [Suspect]
     Active Substance: SILDENAFIL CITRATE
     Indication: ERECTILE DYSFUNCTION
     Dosage: ?          QUANTITY:1 DF DOSAGE FORM;?
     Route: 048
  4. METOPROLOL SUCC [Concomitant]
     Active Substance: METOPROLOL SUCCINATE
  5. CARDURA [Concomitant]
     Active Substance: DOXAZOSIN MESYLATE

REACTIONS (4)
  - Syncope [None]
  - Asthenia [None]
  - Dyspnoea [None]
  - Dizziness [None]

NARRATIVE: CASE EVENT DATE: 20180520
